FAERS Safety Report 9303938 (Version 1)
Quarter: 2013Q2

REPORT INFORMATION
  Report Type: Other
  Country: IT (occurrence: IT)
  Receive Date: 20130522
  Receipt Date: 20130522
  Transmission Date: 20140414
  Serious: Yes (Life-Threatening, Hospitalization)
  Sender: FDA-Public Use
  Company Number: IT-BRISTOL-MYERS SQUIBB COMPANY-18915850

PATIENT
  Age: 66 Year
  Sex: Female

DRUGS (1)
  1. METFORMIN HCL [Suspect]
     Indication: DIABETES MELLITUS

REACTIONS (5)
  - Cardiac arrest [Recovered/Resolved]
  - Anuria [Recovered/Resolved]
  - Blood urea increased [Recovered/Resolved]
  - Blood creatinine increased [Recovered/Resolved]
  - Lactic acidosis [Recovered/Resolved]
